FAERS Safety Report 5597539-2 (Version None)
Quarter: 2008Q1

REPORT INFORMATION
  Report Type: 
  Country: None (occurrence: None)
  Receive Date: 20080121
  Receipt Date: 20080109
  Transmission Date: 20080703
  Serious: Yes (Life-Threatening, Other)
  Sender: FDA-Public Use
  Company Number: DE-ROCHE-502191

PATIENT
  Age: 66 Year
  Sex: Female
  Weight: 44 kg

DRUGS (1)
  1. BONIVA [Suspect]
     Indication: OSTEOPOROTIC FRACTURE
     Dosage: FORM REPORTED AS INJECTABLE SOLUTION
     Route: 042
     Dates: start: 20070523

REACTIONS (2)
  - CORONARY ARTERY STENOSIS [None]
  - VENTRICULAR FIBRILLATION [None]
